FAERS Safety Report 18587667 (Version 6)
Quarter: 2024Q2

REPORT INFORMATION
  Report Type: Report from Study
  Country: US (occurrence: US)
  Receive Date: 20201207
  Receipt Date: 20240522
  Transmission Date: 20240716
  Serious: Yes (Other)
  Sender: FDA-Public Use
  Company Number: US-TAKEDA-2015US004580

PATIENT
  Age: 80 Year
  Sex: Female
  Weight: 64 kg

DRUGS (5)
  1. PONATINIB [Suspect]
     Active Substance: PONATINIB
     Indication: Chronic myeloid leukaemia
     Dosage: 45 MILLIGRAM, QD
     Route: 048
     Dates: start: 20150210
  2. PONATINIB [Suspect]
     Active Substance: PONATINIB
     Indication: Breast cancer female
     Dosage: 30 MILLIGRAM, QD
     Route: 065
     Dates: start: 201901
  3. PONATINIB [Suspect]
     Active Substance: PONATINIB
     Dosage: 15 MILLIGRAM, QD
     Route: 065
  4. PONATINIB [Suspect]
     Active Substance: PONATINIB
     Dosage: 30 MILLIGRAM, QD
     Route: 065
  5. PONATINIB [Suspect]
     Active Substance: PONATINIB
     Dosage: 30 MILLIGRAM, QD
     Route: 048

REACTIONS (18)
  - Loss of consciousness [Not Recovered/Not Resolved]
  - Diabetes mellitus [Unknown]
  - Vertigo [Unknown]
  - Accident [Not Recovered/Not Resolved]
  - Fall [Not Recovered/Not Resolved]
  - Sinus disorder [Unknown]
  - Multiple allergies [Not Recovered/Not Resolved]
  - Influenza [Recovering/Resolving]
  - Pancreatic enzymes abnormal [Recovered/Resolved]
  - Tinnitus [Unknown]
  - Paraesthesia [Unknown]
  - Visual impairment [Not Recovered/Not Resolved]
  - Laboratory test abnormal [Recovering/Resolving]
  - Rash pruritic [Not Recovered/Not Resolved]
  - Fatigue [Not Recovered/Not Resolved]
  - Malaise [Unknown]
  - Product use issue [Unknown]
  - Off label use [Unknown]

NARRATIVE: CASE EVENT DATE: 20230330
